FAERS Safety Report 9502394 (Version 2)
Quarter: 2014Q1

REPORT INFORMATION
  Report Type: Spontaneous
  Country: US (occurrence: US)
  Receive Date: 20130906
  Receipt Date: 20140128
  Transmission Date: 20141002
  Serious: No
  Sender: FDA-Public Use
  Company Number: US-BIOGENIDEC-2013BI083997

PATIENT
  Age: 26 Year
  Sex: Female

DRUGS (11)
  1. TYSABRI [Suspect]
     Indication: RELAPSING-REMITTING MULTIPLE SCLEROSIS
     Route: 042
     Dates: start: 20120203
  2. SYNTHROID [Concomitant]
  3. OXYBUTYNIN CHLORIDE [Concomitant]
  4. NAPROXEN SODIUM [Concomitant]
  5. MICROGESTIN FE [Concomitant]
  6. FEXOFENADINE [Concomitant]
  7. CALCIUM CARBONATE [Concomitant]
     Indication: GASTROOESOPHAGEAL REFLUX DISEASE
  8. VITAMIN D3 [Concomitant]
  9. TAGAMET [Concomitant]
     Indication: GASTROOESOPHAGEAL REFLUX DISEASE
  10. ALLEGRA [Concomitant]
  11. DETROL [Concomitant]
     Indication: URINARY TRACT DISORDER

REACTIONS (12)
  - Road traffic accident [Recovered/Resolved]
  - Wrist fracture [Recovered/Resolved]
  - Upper limb fracture [Recovered/Resolved]
  - Tooth fracture [Recovered/Resolved]
  - Concussion [Recovered/Resolved]
  - Muscular weakness [Unknown]
  - Fungal infection [Recovered/Resolved]
  - Bacterial vaginosis [Recovered/Resolved]
  - Fall [Recovered/Resolved]
  - Disorientation [Recovered/Resolved]
  - Amnesia [Recovered/Resolved]
  - Excoriation [Recovered/Resolved]
